FAERS Safety Report 16308319 (Version 3)
Quarter: 2019Q2

REPORT INFORMATION
  Report Type: Spontaneous
  Country: US (occurrence: US)
  Receive Date: 20190514
  Receipt Date: 20190520
  Transmission Date: 20190711
  Serious: Yes (Other)
  Sender: FDA-Public Use
  Company Number: US-BIOGEN-2019BI00736344

PATIENT
  Age: 45 Year
  Sex: Female

DRUGS (2)
  1. TECFIDERA [Suspect]
     Active Substance: DIMETHYL FUMARATE
     Route: 048
     Dates: start: 20190506
  2. TECFIDERA [Suspect]
     Active Substance: DIMETHYL FUMARATE
     Indication: MULTIPLE SCLEROSIS
     Route: 048
     Dates: start: 20190424

REACTIONS (16)
  - Type 2 diabetes mellitus [Unknown]
  - Dry mouth [Not Recovered/Not Resolved]
  - Joint stiffness [Unknown]
  - Headache [Not Recovered/Not Resolved]
  - Balance disorder [Unknown]
  - Weight decreased [Unknown]
  - Drooling [Unknown]
  - Psychomotor hyperactivity [Not Recovered/Not Resolved]
  - Eyelid ptosis [Unknown]
  - Stress [Unknown]
  - Increased appetite [Not Recovered/Not Resolved]
  - Dizziness [Unknown]
  - Feeling cold [Unknown]
  - Lethargy [Unknown]
  - Tremor [Unknown]
  - Fatigue [Not Recovered/Not Resolved]

NARRATIVE: CASE EVENT DATE: 20190506
